FAERS Safety Report 21632996 (Version 1)
Quarter: 2022Q4

REPORT INFORMATION
  Report Type: Spontaneous
  Country: JP (occurrence: JP)
  Receive Date: 20221123
  Receipt Date: 20221123
  Transmission Date: 20230113
  Serious: Yes (Death, Hospitalization, Other)
  Sender: FDA-Public Use
  Company Number: JP-Axellia-004493

PATIENT
  Age: 71 Year
  Sex: Female

DRUGS (6)
  1. VORICONAZOLE [Interacting]
     Active Substance: VORICONAZOLE
     Indication: Trichosporon infection
  2. WARFARIN [Interacting]
     Active Substance: WARFARIN
     Indication: Vasospasm
  3. LEVOFLOXACIN [Concomitant]
     Active Substance: LEVOFLOXACIN
  4. CEFTRIAXONE [Concomitant]
     Active Substance: CEFTRIAXONE
  5. MEROPENEM [Concomitant]
     Active Substance: MEROPENEM
  6. AMPHOTERICIN B [Concomitant]
     Active Substance: AMPHOTERICIN B
     Indication: Trichosporon infection

REACTIONS (3)
  - Drug interaction [Fatal]
  - Cerebral haemorrhage [Fatal]
  - Brain herniation [Fatal]
